FAERS Safety Report 8104206-X (Version None)
Quarter: 2012Q1

REPORT INFORMATION
  Report Type: 
  Country: None (occurrence: None)
  Receive Date: 20120201
  Receipt Date: 20120125
  Transmission Date: 20120608
  Serious: Yes (Disabling, Other)
  Sender: FDA-Public Use
  Company Number: CA-PFIZER INC-2012016397

PATIENT
  Age: 73 Year
  Sex: Female
  Weight: 62 kg

DRUGS (5)
  1. CAMPTOSAR [Suspect]
     Dosage: 150 MG/M2, CYCLIC (EVERY 2 WEEKS)
     Route: 042
     Dates: start: 20110801, end: 20110906
  2. FLUOROURACIL [Suspect]
     Dosage: 2000 MG/M2, CYCLIC (EVERY 2 WEEKS)
     Route: 041
     Dates: start: 20110725, end: 20110906
  3. CAMPTOSAR [Suspect]
     Indication: COLON CANCER METASTATIC
     Dosage: 180 MG/M2, SINGLE
     Route: 042
     Dates: start: 20110725, end: 20110725
  4. AVASTIN [Suspect]
     Indication: COLON CANCER METASTATIC
     Dosage: 5 MG/KG, CYCLIC (EVERY 2 WEEKS)
     Route: 042
     Dates: start: 20110725, end: 20110906
  5. FLUOROURACIL [Suspect]
     Indication: COLON CANCER METASTATIC
     Dosage: 320 MG/ML, SINGLE
     Route: 040
     Dates: start: 20110725, end: 20110906

REACTIONS (1)
  - PULMONARY TOXICITY [None]
